FAERS Safety Report 14226144 (Version 3)
Quarter: 2018Q1

REPORT INFORMATION
  Report Type: Spontaneous
  Country: CH (occurrence: CH)
  Receive Date: 20171127
  Receipt Date: 20180309
  Transmission Date: 20180508
  Serious: Yes (Hospitalization)
  Sender: FDA-Public Use
  Company Number: CH-009507513-1711CHE009915

PATIENT
  Age: 38 Year
  Sex: Female

DRUGS (4)
  1. MAXALT [Suspect]
     Active Substance: RIZATRIPTAN BENZOATE
     Indication: MIGRAINE
     Dosage: 10 MG, UNK
     Route: 048
  2. BRINTELLIX [Suspect]
     Active Substance: VORTIOXETINE HYDROBROMIDE
     Dosage: 20 MG, QD
     Route: 048
  3. MORPHINE [Suspect]
     Active Substance: MORPHINE
     Dosage: UNK
     Dates: start: 20171106
  4. ONDANSETRON [Suspect]
     Active Substance: ONDANSETRON
     Dosage: 4 MG, UNK
     Route: 042
     Dates: start: 20171106

REACTIONS (7)
  - Hyperhidrosis [Recovered/Resolved]
  - Muscle twitching [Recovered/Resolved]
  - Tachycardia [Recovered/Resolved]
  - Serotonin syndrome [Recovered/Resolved]
  - Tremor [Recovered/Resolved]
  - Somnolence [Recovered/Resolved]
  - Restlessness [Recovered/Resolved]

NARRATIVE: CASE EVENT DATE: 20171106
